FAERS Safety Report 7350181-5 (Version None)
Quarter: 2011Q1

REPORT INFORMATION
  Report Type: 
  Country: None (occurrence: None)
  Receive Date: 20110314
  Receipt Date: 20110303
  Transmission Date: 20110831
  Serious: Yes (Hospitalization)
  Sender: FDA-Public Use
  Company Number: B0703508A

PATIENT
  Sex: Female
  Weight: 29 kg

DRUGS (2)
  1. SERETIDE [Suspect]
     Indication: ASTHMA
     Dosage: 1PUFF PER DAY
     Route: 055
     Dates: start: 20101009
  2. SINGULAIR [Suspect]
     Indication: ASTHMA
     Dosage: 5MG PER DAY
     Route: 048
     Dates: start: 20101009, end: 20101117

REACTIONS (2)
  - GAIT DISTURBANCE [None]
  - PAIN [None]
